FAERS Safety Report 10190499 (Version 1)
Quarter: 2014Q2

REPORT INFORMATION
  Report Type: Spontaneous
  Country: US (occurrence: US)
  Receive Date: 20140522
  Receipt Date: 20140522
  Transmission Date: 20141212
  Serious: Yes (Other)
  Sender: FDA-Public Use
  Company Number: US-SA-2014SA015645

PATIENT
  Sex: Female
  Weight: 57.6 kg

DRUGS (1)
  1. ELOXATIN [Suspect]
     Route: 065

REACTIONS (3)
  - Chest discomfort [Unknown]
  - Swelling face [Unknown]
  - Flushing [Unknown]
